FAERS Safety Report 19658153 (Version 1)
Quarter: 2021Q3

REPORT INFORMATION
  Report Type: Spontaneous
  Country: US (occurrence: US)
  Receive Date: 20210805
  Receipt Date: 20210805
  Transmission Date: 20211014
  Serious: No
  Sender: FDA-Public Use
  Company Number: US-SA-2021SA255843

PATIENT
  Sex: Female

DRUGS (3)
  1. DUPIXENT [Suspect]
     Active Substance: DUPILUMAB
     Indication: NASAL POLYPS
  2. DUPIXENT [Suspect]
     Active Substance: DUPILUMAB
     Indication: ASTHMA
     Dosage: 300 MG, QOW
     Route: 058
     Dates: start: 20210324
  3. VACUNA COVID?19 PFIZER BIONTECH [Concomitant]

REACTIONS (3)
  - Injection site swelling [Unknown]
  - Cough [Unknown]
  - Stress [Unknown]

NARRATIVE: CASE EVENT DATE: 2021
